FAERS Safety Report 6709175-2 (Version None)
Quarter: 2010Q2

REPORT INFORMATION
  Report Type: 
  Country: None (occurrence: None)
  Receive Date: 20100504
  Receipt Date: 20100422
  Transmission Date: 20101027
  Serious: Yes (Hospitalization)
  Sender: FDA-Public Use
  Company Number: JP-WYE-H14715210

PATIENT
  Sex: Male
  Weight: 85.4 kg

DRUGS (4)
  1. DESVENLAFAXINE SUCCINATE MONOHYDRATE [Suspect]
     Indication: MAJOR DEPRESSION
     Route: 048
     Dates: start: 20100120, end: 20100202
  2. DESVENLAFAXINE SUCCINATE MONOHYDRATE [Suspect]
     Route: 048
     Dates: start: 20100203, end: 20100316
  3. DESVENLAFAXINE SUCCINATE MONOHYDRATE [Suspect]
     Route: 048
     Dates: start: 20100317, end: 20100414
  4. DESVENLAFAXINE SUCCINATE MONOHYDRATE [Suspect]
     Route: 048
     Dates: start: 20100415, end: 20100101

REACTIONS (1)
  - EPSTEIN-BARR VIRUS INFECTION [None]
